FAERS Safety Report 9358604 (Version 1)
Quarter: 2013Q2

REPORT INFORMATION
  Report Type: Spontaneous
  Country: US (occurrence: US)
  Receive Date: 20130620
  Receipt Date: 20130620
  Transmission Date: 20140414
  Serious: Yes (Hospitalization)
  Sender: FDA-Public Use
  Company Number: PHHY2013US060899

PATIENT
  Age: 71 Year
  Sex: Female

DRUGS (1)
  1. LEVODOPA+CARBIDOPA [Suspect]

REACTIONS (5)
  - Herpes simplex encephalitis [Unknown]
  - Unresponsive to stimuli [Unknown]
  - Muscle rigidity [Recovered/Resolved]
  - Hyporeflexia [Unknown]
  - Drug withdrawal syndrome [Unknown]
